FAERS Safety Report 8448080-0 (Version None)
Quarter: 2012Q2

REPORT INFORMATION
  Report Type: 
  Country: None (occurrence: None)
  Receive Date: 20120530
  Receipt Date: 20120523
  Transmission Date: 20120825
  Serious: Yes (Other)
  Sender: FDA-Public Use
  Company Number: 2011030561

PATIENT
  Age: 56 Year
  Sex: Female
  Weight: 79.3795 kg

DRUGS (50)
  1. HIZENTRA [Suspect]
  2. HIZENTRA [Suspect]
  3. FLEXERIL (CYCLOBENZAPRINE HYDROCHLORIDE0 [Concomitant]
  4. LIDOCAINE [Concomitant]
  5. HIZENTRA [Suspect]
  6. LIPITOR [Concomitant]
  7. TERAZOSIN HCL [Concomitant]
  8. FIORICET [Concomitant]
  9. GLYCOPYRROLATE [Concomitant]
  10. HIZENTRA [Suspect]
     Indication: HYPOGLOBULINAEMIA
     Dosage: SEE IMAGE
     Route: 058
     Dates: start: 20111108, end: 20111108
  11. HIZENTRA [Suspect]
     Indication: COMBINED IMMUNODEFICIENCY
     Dosage: SEE IMAGE
     Route: 058
     Dates: start: 20111108, end: 20111108
  12. HIZENTRA [Suspect]
     Indication: SELECTIVE IGA IMMUNODEFICIENCY
     Dosage: SEE IMAGE
     Route: 058
     Dates: start: 20111108, end: 20111108
  13. HIZENTRA [Suspect]
     Indication: HYPOGLOBULINAEMIA
     Dosage: SEE IMAGE
     Route: 058
     Dates: start: 20120403, end: 20120403
  14. HIZENTRA [Suspect]
     Indication: COMBINED IMMUNODEFICIENCY
     Dosage: SEE IMAGE
     Route: 058
     Dates: start: 20120403, end: 20120403
  15. HIZENTRA [Suspect]
     Indication: SELECTIVE IGA IMMUNODEFICIENCY
     Dosage: SEE IMAGE
     Route: 058
     Dates: start: 20120403, end: 20120403
  16. HIZENTRA [Suspect]
     Indication: HYPOGLOBULINAEMIA
     Dosage: SEE IMAGE
     Route: 058
     Dates: start: 20120522, end: 20120522
  17. HIZENTRA [Suspect]
     Indication: COMBINED IMMUNODEFICIENCY
     Dosage: SEE IMAGE
     Route: 058
     Dates: start: 20120522, end: 20120522
  18. HIZENTRA [Suspect]
     Indication: SELECTIVE IGA IMMUNODEFICIENCY
     Dosage: SEE IMAGE
     Route: 058
     Dates: start: 20120522, end: 20120522
  19. HIZENTRA [Suspect]
     Indication: HYPOGLOBULINAEMIA
     Dosage: SEE IMAGE
     Route: 058
     Dates: start: 20111010
  20. HIZENTRA [Suspect]
     Indication: COMBINED IMMUNODEFICIENCY
     Dosage: SEE IMAGE
     Route: 058
     Dates: start: 20111010
  21. HIZENTRA [Suspect]
     Indication: SELECTIVE IGA IMMUNODEFICIENCY
     Dosage: SEE IMAGE
     Route: 058
     Dates: start: 20111010
  22. HIZENTRA [Suspect]
     Indication: HYPOGLOBULINAEMIA
     Dosage: SEE IMAGE
     Route: 058
     Dates: start: 20120313, end: 20120313
  23. HIZENTRA [Suspect]
     Indication: COMBINED IMMUNODEFICIENCY
     Dosage: SEE IMAGE
     Route: 058
     Dates: start: 20120313, end: 20120313
  24. HIZENTRA [Suspect]
     Indication: SELECTIVE IGA IMMUNODEFICIENCY
     Dosage: SEE IMAGE
     Route: 058
     Dates: start: 20120313, end: 20120313
  25. HIZENTRA [Suspect]
     Indication: HYPOGLOBULINAEMIA
     Dosage: SEE IMAGE
     Route: 058
     Dates: start: 20120403, end: 20120403
  26. HIZENTRA [Suspect]
     Indication: COMBINED IMMUNODEFICIENCY
     Dosage: SEE IMAGE
     Route: 058
     Dates: start: 20120403, end: 20120403
  27. HIZENTRA [Suspect]
     Indication: SELECTIVE IGA IMMUNODEFICIENCY
     Dosage: SEE IMAGE
     Route: 058
     Dates: start: 20120403, end: 20120403
  28. VIVELLE [Concomitant]
  29. PERCOCET [Concomitant]
  30. VITAMIN D [Concomitant]
  31. CYMBALTA [Concomitant]
  32. METHYLPHENIDATE HCL [Concomitant]
  33. HIZENTRA [Suspect]
  34. FERROUS SULFATE TAB [Concomitant]
  35. LIDODERM [Concomitant]
  36. DIPHENHYDRAMINE HCL [Concomitant]
  37. HIZENTRA [Suspect]
  38. FOLIC ACID [Concomitant]
  39. VITAMIN B12 [Concomitant]
  40. HYDROCHLOROTHIAZIDE [Concomitant]
  41. PROCHLORPERAZINE MALEATE [Concomitant]
  42. PROCHLORPERAZINE MALEATE [Concomitant]
  43. ZOFRAN [Concomitant]
  44. EPIPEN [Concomitant]
  45. ACETAMINOPHEN [Concomitant]
  46. LORATADINE [Concomitant]
  47. VENLAFAXINE HCL [Concomitant]
  48. GABAPENTIN [Concomitant]
  49. HYDROXYZINE [Concomitant]
  50. NEXIUM [Concomitant]

REACTIONS (9)
  - INFUSION RELATED REACTION [None]
  - BONE PAIN [None]
  - PAIN [None]
  - INFUSION SITE HAEMORRHAGE [None]
  - SINUSITIS [None]
  - ARTHRALGIA [None]
  - DRUG INEFFECTIVE [None]
  - INFLUENZA LIKE ILLNESS [None]
  - HEADACHE [None]
